FAERS Safety Report 4833001-X (Version None)
Quarter: 2005Q4

REPORT INFORMATION
  Report Type: 
  Country: None (occurrence: None)
  Receive Date: 20051121
  Receipt Date: 20051110
  Transmission Date: 20060501
  Serious: Yes (Hospitalization, Disabling)
  Sender: FDA-Public Use
  Company Number: CA-MERCK-0511USA01909

PATIENT
  Age: 59 Year
  Sex: Female
  Weight: 61 kg

DRUGS (3)
  1. VIOXX [Suspect]
     Indication: BACK PAIN
     Route: 048
  2. TYLENOL W/ CODEINE NO. 3 [Concomitant]
     Route: 065
  3. CYCLOBENZAPRINE HYDROCHLORIDE [Concomitant]
     Route: 065

REACTIONS (4)
  - BACK DISORDER [None]
  - CHEST PAIN [None]
  - MYOCARDIAL INFARCTION [None]
  - TRISMUS [None]
